FAERS Safety Report 5330246-X (Version None)
Quarter: 2007Q2

REPORT INFORMATION
  Report Type: 
  Country: None (occurrence: None)
  Receive Date: 20070521
  Receipt Date: 20070510
  Transmission Date: 20071010
  Serious: Yes (Other)
  Sender: FDA-Public Use
  Company Number: US-SANOFI-SYNTHELABO-A03200702329

PATIENT
  Sex: Male
  Weight: 78.5 kg

DRUGS (2)
  1. LEXAPRO [Concomitant]
     Indication: DRUG USE FOR UNKNOWN INDICATION
     Dosage: UNK
     Route: 065
  2. AMBIEN [Suspect]
     Indication: INSOMNIA
     Route: 048
     Dates: start: 20050101, end: 20060101

REACTIONS (5)
  - AMNESIA [None]
  - EATING DISORDER [None]
  - FATIGUE [None]
  - ROAD TRAFFIC ACCIDENT [None]
  - SLEEP WALKING [None]
